FAERS Safety Report 14117098 (Version 1)
Quarter: 2017Q4

REPORT INFORMATION
  Report Type: Spontaneous
  Country: US (occurrence: US)
  Receive Date: 20171023
  Receipt Date: 20171023
  Transmission Date: 20180321
  Serious: No
  Sender: FDA-Public Use
  Company Number: PHHY2017US155763

PATIENT
  Sex: Female

DRUGS (1)
  1. ICAPS MV [Suspect]
     Active Substance: MINERALS\VITAMINS
     Indication: VITAMIN SUPPLEMENTATION
     Route: 065

REACTIONS (1)
  - Expired product administered [Unknown]
